FAERS Safety Report 16720442 (Version 1)
Quarter: 2019Q3

REPORT INFORMATION
  Report Type: Spontaneous
  Country: US (occurrence: US)
  Receive Date: 20190820
  Receipt Date: 20190820
  Transmission Date: 20191005
  Serious: Yes (Hospitalization)
  Sender: FDA-Public Use
  Company Number: US-TEVA-2019-US-1093591

PATIENT
  Age: 47 Year
  Sex: Male

DRUGS (2)
  1. TETRAETHYLTHIURAM DISULFIDE [Suspect]
     Active Substance: DISULFIRAM
     Indication: BABESIOSIS
  2. TETRAETHYLTHIURAM DISULFIDE [Suspect]
     Active Substance: DISULFIRAM
     Indication: LYME DISEASE
     Dosage: 500 MILLIGRAM DAILY;
     Route: 065
     Dates: start: 201703

REACTIONS (2)
  - Off label use [Unknown]
  - Mental disorder [Recovered/Resolved]

NARRATIVE: CASE EVENT DATE: 2017
